FAERS Safety Report 7645460 (Version 4)
Quarter: 2013Q1

REPORT INFORMATION
  Report Type: Report from Study
  Country: PL (occurrence: PL)
  Receive Date: 20101028
  Receipt Date: 20130322
  Transmission Date: 20140127
  Serious: Yes (Other)
  Sender: FDA-Public Use
  Company Number: PHHO2010PL15961

PATIENT
  Age: 39 Year
  Sex: Male
  Weight: 70.6 kg

DRUGS (1)
  1. FTY 720 [Suspect]
     Indication: MULTIPLE SCLEROSIS
     Dosage: UNK
     Route: 048
     Dates: start: 20100330

REACTIONS (2)
  - Basal cell carcinoma [Recovered/Resolved]
  - Concomitant disease progression [Recovered/Resolved]
